FAERS Safety Report 5291121-2 (Version None)
Quarter: 2007Q2

REPORT INFORMATION
  Report Type: 
  Country: None (occurrence: None)
  Receive Date: 20070409
  Receipt Date: 20070406
  Transmission Date: 20071010
  Serious: Yes (Hospitalization)
  Sender: FDA-Public Use
  Company Number: US-BRISTOL-MYERS SQUIBB COMPANY-13741756

PATIENT
  Age: 45 Year
  Sex: Female
  Weight: 58 kg

DRUGS (3)
  1. CETUXIMAB [Suspect]
     Indication: CERVIX CARCINOMA
     Dates: start: 20070205, end: 20070205
  2. CISPLATIN [Suspect]
     Indication: CERVIX CARCINOMA
     Dates: start: 20070205, end: 20070205
  3. RADIATION THERAPY [Suspect]
     Indication: CERVIX CARCINOMA
     Dates: start: 20060205

REACTIONS (4)
  - DEHYDRATION [None]
  - DIARRHOEA [None]
  - ENTEROCOLITIS INFECTIOUS [None]
  - FATIGUE [None]
